FAERS Safety Report 10518963 (Version 1)
Quarter: 2014Q4

REPORT INFORMATION
  Report Type: Spontaneous
  Country: TR (occurrence: TR)
  Receive Date: 20141015
  Receipt Date: 20141015
  Transmission Date: 20150528
  Serious: Yes (Other)
  Sender: FDA-Public Use
  Company Number: PHHY2013TR119559

PATIENT
  Age: 8 Year
  Sex: Male

DRUGS (1)
  1. IMIPRAMINE [Suspect]
     Active Substance: IMIPRAMINE
     Indication: ENURESIS
     Dosage: 10 MG, PER DAY
     Route: 065

REACTIONS (3)
  - Muscle spasms [Recovered/Resolved]
  - Dystonia [Recovered/Resolved]
  - Torticollis [Recovered/Resolved]
